FAERS Safety Report 5829285-1 (Version None)
Quarter: 2008Q3

REPORT INFORMATION
  Report Type: 
  Country: None (occurrence: None)
  Receive Date: 20080731
  Receipt Date: 20080710
  Transmission Date: 20090109
  Serious: No
  Sender: FDA-Public Use
  Company Number: US-BOEHRINGER INGELHEIM GMBH, GERMANY-2008-BP-10812BP

PATIENT
  Sex: Male

DRUGS (6)
  1. FLOMAX [Suspect]
     Indication: BENIGN PROSTATIC HYPERPLASIA
     Route: 048
     Dates: start: 20080501, end: 20080601
  2. PREVACID [Concomitant]
     Indication: REFLUX OESOPHAGITIS
  3. VALIUM [Concomitant]
     Indication: NERVOUSNESS
  4. ASPIRIN [Concomitant]
  5. SEROQUEL [Concomitant]
  6. UROXACROL [Concomitant]
     Indication: BENIGN PROSTATIC HYPERPLASIA

REACTIONS (5)
  - EAR PAIN [None]
  - FATIGUE [None]
  - MUSCULAR WEAKNESS [None]
  - NASAL CONGESTION [None]
  - PAIN IN JAW [None]
